FAERS Safety Report 8783114 (Version 1)
Quarter: 2012Q4

REPORT INFORMATION
  Report Type: Report from Study
  Country: JP (occurrence: JP)
  Receive Date: 20120913
  Receipt Date: 20120913
  Transmission Date: 20130627
  Serious: Yes (Hospitalization)
  Sender: FDA-Public Use
  Company Number: JP-VERTEX PHARMACEUTICAL INC.-AE-2012-004796

PATIENT

DRUGS (9)
  1. VX-950 [Suspect]
     Indication: HEPATITIS C
     Dosage: 2250 mg, qd
     Route: 048
     Dates: start: 20120202, end: 20120222
  2. RIBAVIRIN [Suspect]
     Indication: HEPATITIS C
     Dosage: 800 mg, qd
     Route: 048
     Dates: start: 20120202, end: 20120215
  3. RIBAVIRIN [Suspect]
     Dosage: 600 mg, qd
     Route: 048
     Dates: start: 20120216, end: 20120222
  4. PEGINTRON [Concomitant]
     Indication: HEPATITIS C
     Dosage: 1.5 ?g/kg, 1x/week
     Route: 058
     Dates: start: 20120202, end: 20120216
  5. ZYLORIC [Concomitant]
     Route: 048
     Dates: start: 20120206, end: 20120222
  6. LOXONIN [Concomitant]
  7. CYTOTEC [Concomitant]
     Route: 048
  8. PARIET [Concomitant]
     Route: 048
  9. JANUVIA [Concomitant]
     Route: 048

REACTIONS (1)
  - Blood creatinine increased [Recovered/Resolved]
